FAERS Safety Report 7506864-7 (Version None)
Quarter: 2011Q2

REPORT INFORMATION
  Report Type: 
  Country: None (occurrence: None)
  Receive Date: 20110526
  Receipt Date: 20110517
  Transmission Date: 20111010
  Serious: Yes (Other)
  Sender: FDA-Public Use
  Company Number: B0721784A

PATIENT
  Sex: Female

DRUGS (9)
  1. LYRICA [Concomitant]
  2. SIMVASTATIN [Concomitant]
  3. TRILAFON [Concomitant]
  4. IMOVANE [Concomitant]
  5. ATACAND HCT [Concomitant]
  6. ZANIDIP [Concomitant]
  7. AVANDAMET [Suspect]
     Route: 048
     Dates: start: 20101109
  8. TENORMIN [Concomitant]
  9. TROMBYL [Concomitant]

REACTIONS (12)
  - OLIGURIA [None]
  - RESPIRATORY RATE INCREASED [None]
  - MEDICATION ERROR [None]
  - FATIGUE [None]
  - ILL-DEFINED DISORDER [None]
  - HYPNOTHERAPY [None]
  - LACTIC ACIDOSIS [None]
  - VOMITING [None]
  - RENAL FAILURE ACUTE [None]
  - NAUSEA [None]
  - DIZZINESS [None]
  - DEHYDRATION [None]
